FAERS Safety Report 8285566-6 (Version None)
Quarter: 2012Q2

REPORT INFORMATION
  Report Type: 
  Country: None (occurrence: None)
  Receive Date: 20120413
  Receipt Date: 20110426
  Transmission Date: 20120825
  Serious: No
  Sender: FDA-Public Use
  Company Number: US-ASTRAZENECA-2011SE25039

PATIENT
  Age: 27 Year
  Sex: Male

DRUGS (3)
  1. ZOLTAC [Concomitant]
  2. NEXIUM [Suspect]
     Route: 048
  3. EQUATE [Concomitant]

REACTIONS (3)
  - ABDOMINAL PAIN UPPER [None]
  - DRUG DOSE OMISSION [None]
  - GASTROOESOPHAGEAL REFLUX DISEASE [None]
